FAERS Safety Report 10724695 (Version 1)
Quarter: 2015Q1

REPORT INFORMATION
  Report Type: Spontaneous
  Country: US (occurrence: None)
  Receive Date: 20150116
  Receipt Date: 20150116
  Transmission Date: 20150721
  Serious: Yes (Hospitalization)
  Sender: FDA-Public Use
  Company Number: None

PATIENT
  Age: 90 Year
  Sex: Male
  Weight: 92 kg

DRUGS (2)
  1. CODEINE/GUAIFENESIN [Suspect]
     Active Substance: CODEINE\GUAIFENESIN
     Indication: COUGH
     Dosage: ML
     Dates: start: 20140401, end: 20141103
  2. ACETAMINOPHEN/HYDROCODONE [Suspect]
     Active Substance: ACETAMINOPHEN\HYDROCODONE
     Indication: PAIN
     Route: 048
     Dates: start: 20140601, end: 20141103

REACTIONS (2)
  - Constipation [None]
  - Small intestinal obstruction [None]

NARRATIVE: CASE EVENT DATE: 20141103
